FAERS Safety Report 9163268 (Version 1)
Quarter: 2013Q1

REPORT INFORMATION
  Report Type: Spontaneous
  Country: US (occurrence: None)
  Receive Date: 20130313
  Receipt Date: 20130313
  Transmission Date: 20140127
  Serious: No
  Sender: FDA-Public Use
  Company Number: None

PATIENT
  Age: 60 Year
  Sex: Female
  Weight: 61.24 kg

DRUGS (1)
  1. ACTONEL [Suspect]
     Indication: OSTEOPENIA
     Route: 048
     Dates: start: 20130305, end: 20130305

REACTIONS (7)
  - Myalgia [None]
  - Oropharyngeal pain [None]
  - Tongue blistering [None]
  - Dyspepsia [None]
  - Muscle spasms [None]
  - Gingival blister [None]
  - Odynophagia [None]
